FAERS Safety Report 11721005 (Version 4)
Quarter: 2018Q2

REPORT INFORMATION
  Report Type: Report from Study
  Country: US (occurrence: US)
  Receive Date: 20151110
  Receipt Date: 20180427
  Transmission Date: 20180711
  Serious: Yes (Hospitalization)
  Sender: FDA-Public Use
  Company Number: US-SA-2015SA161866

PATIENT
  Age: 62 Year
  Sex: Male

DRUGS (10)
  1. ALIROCUMAB PREFILLED PEN [Suspect]
     Active Substance: ALIROCUMAB
     Indication: BLOOD CHOLESTEROL INCREASED
     Dates: start: 20151007
  2. VALIUM [Concomitant]
     Active Substance: DIAZEPAM
  3. ALBUTEROL SULFATE. [Concomitant]
     Active Substance: ALBUTEROL SULFATE
  4. ALIROCUMAB PREFILLED PEN [Suspect]
     Active Substance: ALIROCUMAB
     Indication: BLOOD CHOLESTEROL INCREASED
     Dates: start: 201612
  5. PRALUENT [Suspect]
     Active Substance: ALIROCUMAB
     Indication: BLOOD CHOLESTEROL INCREASED
     Route: 058
     Dates: start: 201612
  6. CIALIS [Concomitant]
     Active Substance: TADALAFIL
  7. IBUPROFEN. [Concomitant]
     Active Substance: IBUPROFEN
  8. PRALUENT [Suspect]
     Active Substance: ALIROCUMAB
     Indication: BLOOD CHOLESTEROL INCREASED
     Route: 058
     Dates: start: 20151007
  9. PRALUENT [Suspect]
     Active Substance: ALIROCUMAB
     Indication: BLOOD CHOLESTEROL INCREASED
     Route: 058
     Dates: start: 20180413
  10. LUNESTA [Concomitant]
     Active Substance: ESZOPICLONE

REACTIONS (7)
  - Drug ineffective [Unknown]
  - Carotid artery occlusion [Unknown]
  - Myalgia [Unknown]
  - Arthralgia [Unknown]
  - Injection site swelling [Not Recovered/Not Resolved]
  - Retinal tear [Unknown]
  - Vitreous floaters [Unknown]

NARRATIVE: CASE EVENT DATE: 201510
